FAERS Safety Report 9099896 (Version 1)
Quarter: 2013Q1

REPORT INFORMATION
  Report Type: Spontaneous
  Country: JP (occurrence: JP)
  Receive Date: 20130215
  Receipt Date: 20130215
  Transmission Date: 20140127
  Serious: Yes (Hospitalization)
  Sender: FDA-Public Use
  Company Number: JP-NAPPMUNDI-GBR-2013-0013136

PATIENT
  Age: 81 Year
  Sex: Female

DRUGS (4)
  1. BUPRENORPHINE TRANSDERMAL SYSTEM [Suspect]
     Indication: ARTHRALGIA
     Dosage: 10 MCG, Q1H
     Route: 062
     Dates: start: 20120705
  2. BUPRENORPHINE TRANSDERMAL SYSTEM [Suspect]
     Dosage: 5 MCG, Q1H
     Route: 062
     Dates: start: 20120602, end: 20120704
  3. ANPLAG [Concomitant]
     Route: 048
  4. PRORENAL [Concomitant]
     Route: 048

REACTIONS (5)
  - Cardiac failure [Unknown]
  - Joint stiffness [Unknown]
  - Drug administered at inappropriate site [Unknown]
  - Application site dermatitis [Recovered/Resolved]
  - Application site erythema [Recovered/Resolved]
